FAERS Safety Report 11272587 (Version 1)
Quarter: 2015Q3

REPORT INFORMATION
  Report Type: Spontaneous
  Country: US (occurrence: None)
  Receive Date: 20150714
  Receipt Date: 20150714
  Transmission Date: 20151125
  Serious: Yes (Other)
  Sender: FDA-Public Use
  Company Number: None

PATIENT
  Age: 77 Year
  Sex: Male
  Weight: 72.58 kg

DRUGS (1)
  1. TERBINAFIN [Suspect]
     Active Substance: TERBINAFINE
     Indication: EYE OPERATION
     Dosage: 21

REACTIONS (3)
  - Blindness unilateral [None]
  - Optic nerve injury [None]
  - Glaucoma [None]
